FAERS Safety Report 20493748 (Version 1)
Quarter: 2022Q1

REPORT INFORMATION
  Report Type: Spontaneous
  Country: US (occurrence: US)
  Receive Date: 20220221
  Receipt Date: 20220221
  Transmission Date: 20220423
  Serious: No
  Sender: FDA-Public Use
  Company Number: US-JNJFOC-20220231145

PATIENT

DRUGS (1)
  1. STELARA [Suspect]
     Active Substance: USTEKINUMAB
     Indication: Product used for unknown indication
     Route: 042
     Dates: start: 20211215

REACTIONS (1)
  - Oedema peripheral [Not Recovered/Not Resolved]

NARRATIVE: CASE EVENT DATE: 20211201
